FAERS Safety Report 14055547 (Version 3)
Quarter: 2018Q1

REPORT INFORMATION
  Report Type: Spontaneous
  Country: US (occurrence: US)
  Receive Date: 20171006
  Receipt Date: 20180227
  Transmission Date: 20180508
  Serious: Yes (Hospitalization, Other)
  Sender: FDA-Public Use
  Company Number: US-BRISTOL-MYERS SQUIBB COMPANY-BMS-2017-088037

PATIENT
  Sex: Male
  Weight: 99.9 kg

DRUGS (2)
  1. YERVOY [Suspect]
     Active Substance: IPILIMUMAB
     Indication: MALIGNANT MELANOMA
     Dosage: 1000 MG, Q3WK
     Route: 042
     Dates: start: 20170719
  2. YERVOY [Suspect]
     Active Substance: IPILIMUMAB
     Indication: PRODUCT USED FOR UNKNOWN INDICATION
     Dosage: 1000 MG, Q3MO
     Route: 042

REACTIONS (4)
  - Hospitalisation [Unknown]
  - Colitis [Unknown]
  - Prescribed overdose [Unknown]
  - Off label use [Unknown]
